FAERS Safety Report 19025633 (Version 1)
Quarter: 2021Q1

REPORT INFORMATION
  Report Type: Report from Study
  Country: JP (occurrence: JP)
  Receive Date: 20210318
  Receipt Date: 20210318
  Transmission Date: 20210420
  Serious: Yes (Death)
  Sender: FDA-Public Use
  Company Number: JP-TEVA-2021-JP-1892795

PATIENT

DRUGS (5)
  1. ETOPOSIDE. [Suspect]
     Active Substance: ETOPOSIDE
     Indication: LYMPHOMA
     Dosage: ON DAYS 3 AND 4 OF 21 DAY CYCLE
     Route: 065
  2. SOBUZOXANE [Suspect]
     Active Substance: SOBUZOXANE
     Indication: LYMPHOMA
     Dosage: ON DAYS 3 AND 4 OF 21 CYCLE
     Route: 048
  3. HYDROCORTISONE. [Suspect]
     Active Substance: HYDROCORTISONE
     Indication: LYMPHOMA
     Dosage: ON DAY 2 OF 21 DAY CYCLE
     Route: 065
  4. METHOTREXATE. [Suspect]
     Active Substance: METHOTREXATE
     Indication: LYMPHOMA
     Dosage: ON DAY 1 OF 21 CYCLE
     Route: 048
  5. VINCRISTINE [Suspect]
     Active Substance: VINCRISTINE
     Indication: LYMPHOMA
     Dosage: ON DAY 2 OF 21 CYCLE
     Route: 042

REACTIONS (1)
  - Infection [Fatal]
